FAERS Safety Report 16738243 (Version 1)
Quarter: 2019Q3

REPORT INFORMATION
  Report Type: Spontaneous
  Country: US (occurrence: US)
  Receive Date: 20190825
  Receipt Date: 20190825
  Transmission Date: 20191005
  Serious: No
  Sender: FDA-Public Use
  Company Number: US-SHIRE-US201927503

PATIENT
  Sex: Male

DRUGS (1)
  1. XIIDRA [Suspect]
     Active Substance: LIFITEGRAST
     Indication: PRODUCT USED FOR UNKNOWN INDICATION
     Dosage: UNK UNK, 2X/DAY:BID (USES TWICE DAILY)
     Route: 047
     Dates: start: 201902

REACTIONS (3)
  - Eye irritation [Unknown]
  - Eye swelling [Unknown]
  - Eye pruritus [Unknown]
